FAERS Safety Report 9921072 (Version 1)
Quarter: 2014Q1

REPORT INFORMATION
  Report Type: Report from Study
  Country: US (occurrence: US)
  Receive Date: 20140225
  Receipt Date: 20140225
  Transmission Date: 20141002
  Serious: Yes (Other)
  Sender: FDA-Public Use
  Company Number: US-ROCHE-1336107

PATIENT
  Sex: Female

DRUGS (10)
  1. LUCENTIS [Suspect]
     Indication: RETINAL NEOVASCULARISATION
     Route: 050
  2. AVASTIN [Suspect]
     Indication: RETINAL NEOVASCULARISATION
     Route: 050
  3. PRILOSEC [Concomitant]
     Dosage: OTC
     Route: 065
     Dates: start: 20110720
  4. AZOPT [Concomitant]
     Dosage: BOTH EYES
     Route: 047
     Dates: start: 20110420
  5. COMBIGAN [Concomitant]
     Dosage: 1 DROP IN BOTH EYES
     Route: 047
     Dates: start: 20110420
  6. TRAVATAN Z [Concomitant]
     Dosage: 1 DROP QHS BOTH EYES
     Route: 047
     Dates: start: 20110420
  7. LISINOPRIL [Concomitant]
     Route: 065
     Dates: end: 20110824
  8. HYDROCORTISONE [Concomitant]
     Dosage: 1/4 INCH STRIP OU
     Route: 047
     Dates: start: 20110824
  9. PROPARACAINE [Concomitant]
     Dosage: OU
     Route: 065
  10. MYDRAL [Concomitant]
     Dosage: OU
     Route: 065

REACTIONS (5)
  - Eye pruritus [Recovering/Resolving]
  - Metamorphopsia [Unknown]
  - Arthralgia [Unknown]
  - Full blood count decreased [Unknown]
  - Oscillopsia [Unknown]
